FAERS Safety Report 4914080-8 (Version None)
Quarter: 2006Q1

REPORT INFORMATION
  Report Type: 
  Country: None (occurrence: None)
  Receive Date: 20060213
  Receipt Date: 20060130
  Transmission Date: 20060701
  Serious: Yes (Hospitalization, Other)
  Sender: FDA-Public Use
  Company Number: 2006011035

PATIENT
  Age: 74 Year
  Sex: Male
  Weight: 51.8 kg

DRUGS (6)
  1. VFEND [Suspect]
     Indication: BLOOD BETA-D-GLUCAN INCREASED
     Dosage: 400 MG (200 MG, 2 IN 1 D), INTRAVENOUS
     Route: 042
     Dates: start: 20051229
  2. PINORUBICIN                             (PIRARUBICIN) [Suspect]
     Indication: LYMPHOMA
     Dosage: 45 MG (45 MG, 1 IN 1 D), INTRAVENOUS
     Route: 042
     Dates: start: 20051229, end: 20051229
  3. FILDESIN             (VINDESINE SULFATE) [Suspect]
     Indication: LYMPHOMA
     Dosage: 2 MG (2 MG, 1 IN 1 D), INTRAVENOUS
     Route: 042
     Dates: start: 20051229, end: 20051229
  4. ENDOXAN                (CYCLOPHOSPHAMIDE) [Suspect]
     Indication: LYMPHOMA
     Dosage: 760 MG (760 MG, 1 IN 1 D), INTRAVENOUS
     Route: 042
     Dates: start: 20051229, end: 20051229
  5. RITUXAN               (RITUXIMAB) [Suspect]
     Indication: LYMPHOMA
     Dosage: 600 MG (600 MG, 1 IN 1 D), INTRAVENOUS
     Route: 042
     Dates: start: 20051227, end: 20051227
  6. MICAFUNGIN (MICAFUNGIN) [Concomitant]

REACTIONS (13)
  - ACTIVATED PARTIAL THROMBOPLASTIN TIME PROLONGED [None]
  - BLOOD FIBRINOGEN DECREASED [None]
  - BLOOD POTASSIUM DECREASED [None]
  - COAGULOPATHY [None]
  - FIBRIN DEGRADATION PRODUCTS INCREASED [None]
  - FIBRIN INCREASED [None]
  - GENERAL PHYSICAL HEALTH DETERIORATION [None]
  - LYMPHOMA [None]
  - OEDEMA [None]
  - PROTHROMBIN TIME SHORTENED [None]
  - PYREXIA [None]
  - THROMBIN-ANTITHROMBIN III COMPLEX DECREASED [None]
  - URINE OUTPUT DECREASED [None]
